FAERS Safety Report 7193359-6 (Version None)
Quarter: 2010Q4

REPORT INFORMATION
  Report Type: 
  Country: None (occurrence: None)
  Receive Date: 20101223
  Receipt Date: 20101029
  Transmission Date: 20110411
  Serious: Yes (Hospitalization, Other)
  Sender: FDA-Public Use
  Company Number: US-BAYER-201031741NA

PATIENT
  Sex: Female
  Weight: 109.55 kg

DRUGS (11)
  1. YASMIN [Suspect]
     Indication: OVARIAN CYST RUPTURED
     Route: 048
     Dates: start: 20060901, end: 20060930
  2. LEXAPRO [Concomitant]
     Indication: DEPRESSION
  3. CYMBALTA [Concomitant]
     Indication: DEPRESSION
  4. WELLBUTRIN [Concomitant]
     Indication: DEPRESSION
  5. MAXALT [Concomitant]
     Dates: start: 20050101, end: 20090101
  6. DIOVAN [Concomitant]
     Dates: start: 20060101
  7. AMBIEN [Concomitant]
     Indication: INSOMNIA
     Dates: start: 20060101
  8. ATIVAN [Concomitant]
     Indication: DEPRESSION
     Dates: start: 20060101, end: 20090101
  9. CELEBREX [Concomitant]
     Dates: start: 20050101, end: 20060101
  10. TUSSIONEX [Concomitant]
     Indication: COUGH
     Dates: start: 20060930
  11. ANTIBIOTICS [Concomitant]
     Dates: start: 20060928

REACTIONS (9)
  - ANXIETY [None]
  - DEEP VEIN THROMBOSIS [None]
  - DEPRESSION [None]
  - HYPERTENSION [None]
  - MIGRAINE [None]
  - OVARIAN CYST [None]
  - PELVIC PAIN [None]
  - POST-TRAUMATIC STRESS DISORDER [None]
  - RENAL FAILURE [None]
